FAERS Safety Report 6283941-2 (Version None)
Quarter: 2009Q3

REPORT INFORMATION
  Report Type: 
  Country: None (occurrence: None)
  Receive Date: 20090721
  Receipt Date: 20090721
  Transmission Date: 20100115
  Serious: Yes (Hospitalization)
  Sender: FDA-Public Use
  Company Number: None

PATIENT
  Age: 54 Year
  Sex: Female
  Weight: 121 kg

DRUGS (2)
  1. TYGACIL [Suspect]
     Dosage: 100MG, THEN 50 MG BID BOLUS IV BOLUS
     Route: 040
     Dates: start: 20090201, end: 20090204
  2. PROPOFOL [Suspect]
     Dosage: 40-65MCG/KG/MIN IV DRIP
     Route: 041
     Dates: start: 20090128, end: 20090205

REACTIONS (2)
  - PANCREATITIS [None]
  - RASH [None]
